FAERS Safety Report 4369186-1 (Version None)
Quarter: 2004Q2

REPORT INFORMATION
  Report Type: 
  Country: None (occurrence: None)
  Receive Date: 20040525
  Receipt Date: 20040506
  Transmission Date: 20050107
  Serious: Yes (Hospitalization)
  Sender: FDA-Public Use
  Company Number: MEDI-0001488

PATIENT
  Age: 24 Month
  Sex: Female
  Weight: 7.7111 kg

DRUGS (1)
  1. SYNAGIS [Suspect]
     Indication: ANTIVIRAL PROPHYLAXIS
     Dosage: 118 MG, 1 IN 30 D, INTRAMUSCULAR
     Route: 030
     Dates: start: 20031013, end: 20040202

REACTIONS (5)
  - BLOOD CALCIUM INCREASED [None]
  - BLOOD PHOSPHORUS INCREASED [None]
  - COUGH [None]
  - HERNIA REPAIR [None]
  - RESPIRATORY SYNCYTIAL VIRUS INFECTION [None]
